FAERS Safety Report 4510807-8 (Version None)
Quarter: 2004Q4

REPORT INFORMATION
  Report Type: 
  Country: None (occurrence: None)
  Receive Date: 20041122
  Receipt Date: 20041111
  Transmission Date: 20050328
  Serious: Yes (Death)
  Sender: FDA-Public Use
  Company Number: STA-AE-04-MTX-565

PATIENT
  Age: 73 Year
  Sex: Female

DRUGS (7)
  1. RHEUMATREX [Suspect]
     Indication: RHEUMATOID ARTHRITIS
     Dosage: SEE IMAGE
     Route: 048
     Dates: start: 20040823, end: 20040906
  2. RHEUMATREX [Suspect]
     Indication: RHEUMATOID ARTHRITIS
     Dosage: SEE IMAGE
     Route: 048
     Dates: start: 20040913, end: 20040921
  3. ETODOLAC [Suspect]
     Indication: INFLAMMATION
     Dosage: 400 MG/DAY, ORAL
     Route: 048
     Dates: start: 20040820, end: 20040902
  4. ETODOLAC [Suspect]
     Indication: PAIN
     Dosage: 400 MG/DAY, ORAL
     Route: 048
     Dates: start: 20040820, end: 20040902
  5. ZOVIRAX [Suspect]
     Dosage: 750 NG/DAY, INTRAVENOUS DRIP
     Route: 041
     Dates: start: 20040906, end: 20040912
  6. GASTROM (ECABET MONSODIUM) [Concomitant]
  7. KOLANTYL (ALUMINIUM HYDROXIDE/DICYCLOVERINE HYDROCHLORIDE) [Concomitant]

REACTIONS (10)
  - ANOREXIA [None]
  - HERPES ZOSTER [None]
  - MALAISE [None]
  - MOUTH HAEMORRHAGE [None]
  - PANCYTOPENIA [None]
  - PHARYNGOLARYNGEAL PAIN [None]
  - PYREXIA [None]
  - RESPIRATORY FAILURE [None]
  - STOMATITIS [None]
  - TRACHEAL HAEMORRHAGE [None]
